FAERS Safety Report 4734933-3 (Version None)
Quarter: 2005Q3

REPORT INFORMATION
  Report Type: 
  Country: None (occurrence: None)
  Receive Date: 20050729
  Receipt Date: 20050713
  Transmission Date: 20060218
  Serious: Yes (Hospitalization)
  Sender: FDA-Public Use
  Company Number: USA0507102654

PATIENT
  Age: 76 Year
  Sex: Female

DRUGS (4)
  1. PROZAC [Suspect]
  2. METOPROLOL [Concomitant]
  3. LASIX [Concomitant]
  4. COUMADIN [Concomitant]

REACTIONS (5)
  - CHOKING [None]
  - INFECTION [None]
  - NASOPHARYNGEAL DISORDER [None]
  - THERMAL BURN [None]
  - VOCAL CORD DISORDER [None]
